FAERS Safety Report 6870702-6 (Version None)
Quarter: 2010Q3

REPORT INFORMATION
  Report Type: 
  Country: None (occurrence: None)
  Receive Date: 20100723
  Receipt Date: 20090609
  Transmission Date: 20110219
  Serious: No
  Sender: FDA-Public Use
  Company Number: A0829542A

PATIENT
  Age: 31 Year
  Sex: Female
  Weight: 72 kg

DRUGS (2)
  1. OLUX [Suspect]
     Dosage: 0PCT PER DAY
     Route: 061
     Dates: start: 20090601, end: 20090608
  2. OLUX E [Concomitant]
     Dosage: 0PCT PER DAY
     Route: 061
     Dates: start: 20090528, end: 20090101

REACTIONS (3)
  - CONDITION AGGRAVATED [None]
  - DERMATITIS CONTACT [None]
  - INAPPROPRIATE SCHEDULE OF DRUG ADMINISTRATION [None]
